FAERS Safety Report 9298747 (Version 5)
Quarter: 2013Q3

REPORT INFORMATION
  Report Type: Spontaneous
  Country: FR (occurrence: FR)
  Receive Date: 20130520
  Receipt Date: 20130923
  Transmission Date: 20140515
  Serious: Yes (Congenital Anomaly)
  Sender: FDA-Public Use
  Company Number: FR-VIIV HEALTHCARE LIMITED-A1023474A

PATIENT
  Age: 0 Day
  Sex: Male
  Weight: 3.5 kg

DRUGS (5)
  1. RETROVIR [Suspect]
     Indication: ANTIVIRAL TREATMENT
     Route: 064
     Dates: start: 20111026, end: 20111026
  2. TRUVADA [Suspect]
     Indication: ANTIVIRAL TREATMENT
     Route: 064
     Dates: start: 20111018
  3. PREZISTA [Suspect]
     Indication: ANTIVIRAL TREATMENT
     Route: 064
     Dates: start: 20111018
  4. ISENTRESS [Suspect]
     Indication: ANTIVIRAL TREATMENT
     Route: 064
     Dates: start: 20111018
  5. NORVIR [Suspect]
     Indication: ANTIVIRAL TREATMENT
     Route: 064
     Dates: start: 20111018

REACTIONS (2)
  - Congenital mitral valve incompetence [Unknown]
  - Foetal exposure during pregnancy [Unknown]
